FAERS Safety Report 10142084 (Version 3)
Quarter: 2014Q2

REPORT INFORMATION
  Report Type: Report from Study
  Country: AU (occurrence: AU)
  Receive Date: 20140429
  Receipt Date: 20140605
  Transmission Date: 20141212
  Serious: Yes (Other)
  Sender: FDA-Public Use
  Company Number: PHHY2014AU036153

PATIENT
  Age: 84 Year
  Sex: Female
  Weight: 50 kg

DRUGS (5)
  1. ACLASTA [Suspect]
     Dosage: 5 MG, UNK
     Route: 042
     Dates: start: 20090311
  2. ACLASTA [Suspect]
     Dosage: 5 MG, UNK
     Route: 042
     Dates: start: 20100318
  3. ACLASTA [Suspect]
     Dosage: 5 MG, UNK
     Route: 042
     Dates: start: 20110322
  4. ACLASTA [Suspect]
     Dosage: 5 MG, UNK
     Route: 042
     Dates: start: 20120308
  5. ACLASTA [Suspect]
     Dosage: 5 MG, UNK
     Route: 042
     Dates: start: 20130312

REACTIONS (5)
  - Neoplasm malignant [Unknown]
  - Squamous cell carcinoma of the vulva [Unknown]
  - Foot fracture [Not Recovered/Not Resolved]
  - Ankle fracture [Unknown]
  - Pain in extremity [Not Recovered/Not Resolved]
